FAERS Safety Report 8516732-X (Version None)
Quarter: 2012Q3

REPORT INFORMATION
  Report Type: 
  Country: None (occurrence: None)
  Receive Date: 20120718
  Receipt Date: 20120702
  Transmission Date: 20120928
  Serious: Yes (Other)
  Sender: FDA-Public Use
  Company Number: PE-009507513-2011SP028690

PATIENT
  Age: 56 Year
  Sex: Male
  Weight: 73.3 kg

DRUGS (9)
  1. PRILOSEC [Concomitant]
     Indication: GASTRITIS PROPHYLAXIS
     Dosage: 20 MG, QD
     Route: 048
     Dates: start: 20110524
  2. POSACONAZOLE [Suspect]
     Dosage: 300 MG, QD
     Route: 048
     Dates: start: 20110518, end: 20110613
  3. VALGANCICLOVIR HCL [Suspect]
     Indication: ANTIVIRAL TREATMENT
     Dosage: 450 MG, BID
     Route: 048
     Dates: start: 20110420, end: 20110615
  4. FOLIC ACID [Concomitant]
     Indication: VITAMIN SUPPLEMENTATION
     Dosage: 0.5 MG, QD
     Route: 048
     Dates: start: 20110524
  5. SULFAMETHOXAZOLE AND TRIMETHOPRIM [Concomitant]
     Indication: ANTIFUNGAL PROPHYLAXIS
     Dosage: 800/160 MILLIGRAMS, 4 PER WEEK
     Route: 048
     Dates: start: 20110318
  6. METICORTEN [Concomitant]
     Indication: GRAFT VERSUS HOST DISEASE
     Dosage: GVHD TREATMENT
     Route: 048
     Dates: start: 20110530
  7. ENALAPRIL MALEATE [Concomitant]
     Indication: HYPERTENSION
     Dosage: 10 MG, QD
     Route: 048
     Dates: start: 20110530
  8. TACROLIMUS [Concomitant]
     Indication: GRAFT VERSUS HOST DISEASE
     Dosage: GVHD TREATMENT
     Route: 048
     Dates: start: 20110524
  9. POSACONAZOLE [Suspect]
     Indication: INFECTION SUSCEPTIBILITY INCREASED
     Dosage: 300 MG, BID
     Route: 048
     Dates: start: 20110517, end: 20110517

REACTIONS (1)
  - RENAL FAILURE CHRONIC [None]
